FAERS Safety Report 17514185 (Version 1)
Quarter: 2020Q1

REPORT INFORMATION
  Report Type: Spontaneous
  Country: IT (occurrence: IT)
  Receive Date: 20200306
  Receipt Date: 20200306
  Transmission Date: 20200409
  Serious: Yes (Hospitalization)
  Sender: FDA-Public Use
  Company Number: IT-AUROBINDO-AUR-APL-2020-010617

PATIENT
  Age: 81 Year
  Sex: Male

DRUGS (1)
  1. OLMESARTAN+HYDROCHLOROTHIAZIDE 20/12.5MG [Suspect]
     Active Substance: HYDROCHLOROTHIAZIDE\OLMESARTAN MEDOXOMIL
     Indication: HYPERTENSION
     Dosage: 1 DOSAGE FORM, ONCE A DAY,COMBINATION OF OLMESARTAN-MEDOXOMIL/HYDROCHLOROTHIAZIDE 20/12MG
     Route: 065

REACTIONS (1)
  - Gastrointestinal disorder [Recovering/Resolving]
